FAERS Safety Report 10108542 (Version 1)
Quarter: 2014Q2

REPORT INFORMATION
  Report Type: Spontaneous
  Country: US (occurrence: US)
  Receive Date: 20140425
  Receipt Date: 20140425
  Transmission Date: 20141212
  Serious: Yes (Other)
  Sender: FDA-Public Use
  Company Number: US-BRISTOL-MYERS SQUIBB COMPANY-20630646

PATIENT
  Age: 56 Year
  Sex: Female
  Weight: 90.7 kg

DRUGS (1)
  1. ABATACEPT SUBQ INJECTION 125MG/ML [Suspect]
     Indication: RHEUMATOID ARTHRITIS
     Dosage: STOPPED ON: APRIL2013?RESTARTED ON:AUG13
     Route: 058
     Dates: start: 201210, end: 201403

REACTIONS (4)
  - Breast mass [Recovered/Resolved]
  - Bronchitis [Recovered/Resolved]
  - Pain [Recovering/Resolving]
  - Swelling [Recovering/Resolving]
